FAERS Safety Report 9642465 (Version 3)
Quarter: 2013Q4

REPORT INFORMATION
  Report Type: Spontaneous
  Country: IN (occurrence: IN)
  Receive Date: 20131024
  Receipt Date: 20131204
  Transmission Date: 20140711
  Serious: Yes (Hospitalization)
  Sender: FDA-Public Use
  Company Number: IN-BRISTOL-MYERS SQUIBB COMPANY-19602150

PATIENT
  Age: 70 Year
  Sex: Female
  Weight: 60 kg

DRUGS (3)
  1. ELIQUIS [Suspect]
     Indication: THROMBOSIS PROPHYLAXIS
     Route: 048
     Dates: start: 20131006, end: 20131008
  2. CIPLOX [Concomitant]
     Dosage: 1DF: 100CC
  3. CEFUROXIME [Concomitant]
     Dosage: 1DF: 750 UNITS NOS

REACTIONS (1)
  - Diarrhoea [Recovered/Resolved]
